FAERS Safety Report 9279562 (Version 3)
Quarter: 2013Q2

REPORT INFORMATION
  Report Type: Report from Study
  Country: CA (occurrence: CA)
  Receive Date: 20130509
  Receipt Date: 20130522
  Transmission Date: 20140414
  Serious: Yes (Other)
  Sender: FDA-Public Use
  Company Number: CA-ROCHE-1211289

PATIENT
  Sex: Female
  Weight: 86.2 kg

DRUGS (4)
  1. XELODA [Suspect]
     Indication: BREAST CANCER
     Route: 048
     Dates: start: 200803, end: 200806
  2. XELODA [Suspect]
     Dosage: RESTARTED
     Route: 048
     Dates: start: 201211
  3. XELODA [Suspect]
     Dosage: TEMPORARILY INTERRUPTED
     Route: 048
     Dates: start: 201301
  4. XELODA [Suspect]
     Dosage: RESTARTED
     Route: 048
     Dates: start: 20130315

REACTIONS (7)
  - Lymphoedema [Not Recovered/Not Resolved]
  - Neoplasm [Not Recovered/Not Resolved]
  - Mastectomy [Unknown]
  - Back pain [Not Recovered/Not Resolved]
  - Neuropathy peripheral [Not Recovered/Not Resolved]
  - Palmar-plantar erythrodysaesthesia syndrome [Recovering/Resolving]
  - Nausea [Recovered/Resolved]
